FAERS Safety Report 8564591-1 (Version None)
Quarter: 2012Q3

REPORT INFORMATION
  Report Type: 
  Country: None (occurrence: None)
  Receive Date: 20120803
  Receipt Date: 20120730
  Transmission Date: 20120928
  Serious: Yes (Death)
  Sender: FDA-Public Use
  Company Number: AU-BAYER-2012-075795

PATIENT
  Age: 65 Year
  Sex: Female
  Weight: 79.819 kg

DRUGS (18)
  1. SERETIDE MDI [Concomitant]
     Indication: CHRONIC OBSTRUCTIVE PULMONARY DISEASE
     Dosage: 1-4 PUFFS/DAY
     Dates: start: 20100515
  2. AMLODIPINE [Concomitant]
     Indication: HYPERTENSION
     Dosage: 5 MG, UNK
     Dates: start: 20110917
  3. VALIUM [Concomitant]
     Indication: INSOMNIA
     Dosage: 2.5-5 MG PRN
     Dates: start: 20080101
  4. ALENDRONATE SODIUM [Concomitant]
     Indication: OSTEOPOROSIS
     Dosage: 70 MG, QD
     Route: 048
     Dates: start: 20080101
  5. IRBESARTAN [Concomitant]
     Indication: HYPERTENSION
     Dosage: 150 MG, UNK
     Dates: start: 20100807
  6. ERLOTINIB HYDROCHLORIDE [Suspect]
     Indication: HEPATIC NEOPLASM MALIGNANT
     Dosage: 50 MG, QD
     Route: 048
     Dates: end: 20120726
  7. PROPRANOLOL [Concomitant]
     Indication: PORTAL HYPERTENSION
     Dosage: 50 MG, UNK
     Dates: start: 20100325
  8. HUMAN INSULIN [Concomitant]
     Indication: TYPE 2 DIABETES MELLITUS
     Dosage: 34 U, UNK
     Dates: start: 20111208
  9. MOTILIUM [Concomitant]
     Indication: PROPHYLAXIS OF NAUSEA AND VOMITING
     Dosage: 10 MG, UNK
     Dates: start: 20110528
  10. LACTULOSE [Concomitant]
     Indication: HEPATIC ENCEPHALOPATHY PROPHYLAXIS
     Dosage: 30-60ML
     Dates: start: 20110922
  11. TEMAZEPAM [Concomitant]
     Indication: INSOMNIA
     Dosage: 10 MG, PRN
     Dates: start: 20100322
  12. THIAMINE HCL [Concomitant]
     Indication: VITAMIN SUPPLEMENTATION
     Dosage: 100 MG, UNK
     Dates: start: 20080101
  13. DOXEPIN HCL [Concomitant]
     Indication: INSOMNIA
     Dosage: 20 MG, UNK
     Dates: start: 20110917
  14. NEXAVAR [Suspect]
     Indication: HEPATIC NEOPLASM MALIGNANT
     Dosage: 400 MG, QOD
     Route: 048
     Dates: end: 20120726
  15. NEXAVAR [Suspect]
     Dosage: UNK
     Dates: start: 20120730
  16. ERLOTINIB HYDROCHLORIDE [Suspect]
     Dosage: 50 MG, QD
     Route: 048
     Dates: start: 20120730
  17. VITAMINORUM [Concomitant]
     Indication: VITAMIN SUPPLEMENTATION
     Dosage: 1 DF, UNK
     Dates: start: 20100319
  18. MAGNESIUM ASPARTATE HYDROCHLORIDE [Concomitant]
     Indication: MINERAL SUPPLEMENTATION
     Dosage: 1 DF, UNK
     Dates: start: 20110918

REACTIONS (1)
  - INFLUENZA [None]
